FAERS Safety Report 5282768-8 (Version None)
Quarter: 2007Q2

REPORT INFORMATION
  Report Type: 
  Country: None (occurrence: None)
  Receive Date: 20070402
  Receipt Date: 20070305
  Transmission Date: 20071010
  Serious: Yes (Hospitalization)
  Sender: FDA-Public Use
  Company Number: FR-RB-005714-07

PATIENT
  Sex: Female

DRUGS (1)
  1. SUBUTEX [Suspect]
     Indication: DRUG USE FOR UNKNOWN INDICATION
     Dosage: DOSAGE UNKNOWN
     Route: 042

REACTIONS (2)
  - INTENTIONAL DRUG MISUSE [None]
  - PERICARDITIS [None]
